FAERS Safety Report 10010534 (Version 1)
Quarter: 2014Q1

REPORT INFORMATION
  Report Type: Spontaneous
  Country: US (occurrence: US)
  Receive Date: 20140314
  Receipt Date: 20140314
  Transmission Date: 20141002
  Serious: Yes (Death)
  Sender: FDA-Public Use
  Company Number: US-BRISTOL-MYERS SQUIBB COMPANY-20468427

PATIENT
  Age: 75 Year
  Sex: Female

DRUGS (2)
  1. YERVOY [Suspect]
     Dates: start: 201402
  2. COUMADIN [Concomitant]

REACTIONS (1)
  - Death [Fatal]
